FAERS Safety Report 6694614-6 (Version None)
Quarter: 2010Q2

REPORT INFORMATION
  Report Type: 
  Country: None (occurrence: None)
  Receive Date: 20100420
  Receipt Date: 20100408
  Transmission Date: 20101027
  Serious: Yes (Hospitalization, Other)
  Sender: FDA-Public Use
  Company Number: 028-20484-09040854

PATIENT
  Sex: Male
  Weight: 2 kg

DRUGS (3)
  1. INNOHEP [Suspect]
     Dosage: TRANSPLACENTAL
     Route: 064
  2. WARFARIN SODIUM [Concomitant]
  3. PREDNISONE TAB [Concomitant]

REACTIONS (2)
  - MATERNAL DRUGS AFFECTING FOETUS [None]
  - PREMATURE BABY [None]
